FAERS Safety Report 9799450 (Version 1)
Quarter: 2014Q1

REPORT INFORMATION
  Report Type: Spontaneous
  Country: US (occurrence: None)
  Receive Date: 20140103
  Receipt Date: 20140103
  Transmission Date: 20141002
  Serious: Yes (Hospitalization)
  Sender: FDA-Public Use
  Company Number: None

PATIENT
  Age: 66 Year
  Sex: Female
  Weight: 67.13 kg

DRUGS (1)
  1. OPSUMIT [Suspect]
     Indication: PULMONARY ARTERIAL HYPERTENSION
     Dosage: 10 MG  ONCE DAILY  PO
     Route: 048
     Dates: start: 20131202

REACTIONS (4)
  - Pulmonary oedema [None]
  - Venoocclusive disease [None]
  - Hypoxia [None]
  - Dyspnoea exertional [None]
